FAERS Safety Report 5656610-7 (Version None)
Quarter: 2008Q1

REPORT INFORMATION
  Report Type: 
  Country: None (occurrence: None)
  Receive Date: 20080306
  Receipt Date: 20080306
  Transmission Date: 20080703
  Serious: Yes (Hospitalization)
  Sender: FDA-Public Use
  Company Number: None

PATIENT
  Age: 35 Year
  Sex: Male

DRUGS (4)
  1. BENICAR [Suspect]
     Indication: HYPERTENSION
     Dosage: 20MG DAILY PO
     Route: 048
  2. ZANAFLEX [Concomitant]
  3. IBUPROFEN [Concomitant]
  4. PERCOCET [Concomitant]

REACTIONS (1)
  - RHABDOMYOLYSIS [None]
